FAERS Safety Report 25732087 (Version 1)
Quarter: 2025Q3

REPORT INFORMATION
  Report Type: Spontaneous
  Country: CA (occurrence: CA)
  Receive Date: 20250827
  Receipt Date: 20250827
  Transmission Date: 20251021
  Serious: Yes (Other)
  Sender: ANI
  Company Number: CN-ANIPHARMA-2025-CN-000045

PATIENT
  Age: 43 Year
  Sex: Female

DRUGS (5)
  1. ARIMIDEX [Suspect]
     Active Substance: ANASTROZOLE
     Indication: Breast cancer metastatic
  2. FEMARA [Suspect]
     Active Substance: LETROZOLE
  3. KISQALI [Suspect]
     Active Substance: RIBOCICLIB SUCCINATE
     Route: 048
  4. TAMOXIFEN [Suspect]
     Active Substance: TAMOXIFEN
  5. PREDNISONE [Concomitant]
     Active Substance: PREDNISONE

REACTIONS (7)
  - Drug ineffective [Unknown]
  - Decreased appetite [Unknown]
  - Hepatic enzyme increased [Unknown]
  - Hepatotoxicity [Unknown]
  - Insomnia [Unknown]
  - Malignant neoplasm progression [Unknown]
  - Vomiting [Unknown]
